FAERS Safety Report 8836047 (Version 1)
Quarter: 2012Q4

REPORT INFORMATION
  Report Type: 
  Country: GB (occurrence: GB)
  Receive Date: 20121011
  Receipt Date: 20121011
  Transmission Date: 20130627
  Serious: Yes (Hospitalization, Other)
  Sender: FDA-Public Use
  Company Number: GB-ELI_LILLY_AND_COMPANY-GB201210000433

PATIENT
  Age: 50 Year
  Sex: Male
  Weight: 153 kg

DRUGS (8)
  1. BYDUREON [Suspect]
     Dosage: 2 mg, weekly (1/W)
     Route: 058
     Dates: start: 20120723, end: 20120913
  2. ATENOLOL [Concomitant]
  3. DOXAZOSIN [Concomitant]
  4. FUROSEMIDE [Concomitant]
  5. GLICLAZIDE [Concomitant]
  6. METFORMIN [Concomitant]
  7. RAMIPRIL [Concomitant]
  8. SITAGLIPTIN [Concomitant]

REACTIONS (2)
  - Deep vein thrombosis [Unknown]
  - Pulmonary embolism [Unknown]
